FAERS Safety Report 14349709 (Version 1)
Quarter: 2018Q1

REPORT INFORMATION
  Report Type: Spontaneous
  Country: CA (occurrence: CA)
  Receive Date: 20180104
  Receipt Date: 20180104
  Transmission Date: 20180509
  Serious: Yes (Other)
  Sender: FDA-Public Use
  Company Number: CA-JNJFOC-20171235802

PATIENT
  Age: 63 Year
  Sex: Male
  Weight: 147.42 kg

DRUGS (8)
  1. RAMIPRIL. [Concomitant]
     Active Substance: RAMIPRIL
     Route: 065
  2. GLICLAZIDE [Concomitant]
     Active Substance: GLICLAZIDE
     Route: 065
  3. INVOKANA [Suspect]
     Active Substance: CANAGLIFLOZIN
     Indication: DIABETES MELLITUS
     Route: 048
  4. METFORMIN [Concomitant]
     Active Substance: METFORMIN HYDROCHLORIDE
     Route: 065
  5. AMLODIPINE [Concomitant]
     Active Substance: AMLODIPINE BESYLATE
     Route: 065
  6. TAMSULOSIN CR [Concomitant]
     Active Substance: TAMSULOSIN
     Route: 065
  7. ASA [Concomitant]
     Active Substance: ASPIRIN
     Route: 065
  8. LEVOTHYROXINE. [Concomitant]
     Active Substance: LEVOTHYROXINE
     Route: 065

REACTIONS (8)
  - Dysuria [Recovering/Resolving]
  - Nephrolithiasis [Recovering/Resolving]
  - Urinary tract discomfort [Recovering/Resolving]
  - Urine abnormality [Recovering/Resolving]
  - Renal stone removal [Recovering/Resolving]
  - Urinary tract infection [Recovering/Resolving]
  - Renal pain [Recovering/Resolving]
  - Discomfort [Recovering/Resolving]
